FAERS Safety Report 6915709-5 (Version None)
Quarter: 2010Q3

REPORT INFORMATION
  Report Type: 
  Country: None (occurrence: None)
  Receive Date: 20100810
  Receipt Date: 20100729
  Transmission Date: 20110219
  Serious: No
  Sender: FDA-Public Use
  Company Number: US-BAYER-201012534NA

PATIENT
  Age: 38 Year

DRUGS (1)
  1. ULTRAVIST 300 [Suspect]
     Indication: COMPUTERISED TOMOGRAM ABDOMEN
     Dosage: TOTAL DAILY DOSE: 100 ML  UNIT DOSE: 100 ML

REACTIONS (3)
  - DYSPNOEA [None]
  - PRURITUS [None]
  - SWELLING [None]
